FAERS Safety Report 18636483 (Version 1)
Quarter: 2020Q4

REPORT INFORMATION
  Report Type: Spontaneous
  Country: FR (occurrence: FR)
  Receive Date: 20201218
  Receipt Date: 20201218
  Transmission Date: 20210114
  Serious: Yes (Other)
  Sender: FDA-Public Use
  Company Number: FR-GILEAD-2020-0508978

PATIENT
  Sex: Male

DRUGS (1)
  1. YESCARTA [Suspect]
     Active Substance: AXICABTAGENE CILOLEUCEL
     Indication: PRODUCT USED FOR UNKNOWN INDICATION
     Dosage: UNK
     Route: 042
     Dates: start: 20201124, end: 20201124

REACTIONS (6)
  - Liver disorder [Unknown]
  - Altered state of consciousness [Unknown]
  - Cytokine release syndrome [Unknown]
  - Product complaint [Unknown]
  - Vision blurred [Unknown]
  - Pyrexia [Unknown]

NARRATIVE: CASE EVENT DATE: 202011
